FAERS Safety Report 11288323 (Version 1)
Quarter: 2015Q3

REPORT INFORMATION
  Report Type: Spontaneous
  Country: US (occurrence: US)
  Receive Date: 20150721
  Receipt Date: 20150721
  Transmission Date: 20151125
  Serious: No
  Sender: FDA-Public Use
  Company Number: US-UNITED THERAPEUTICS-UNT-2015-002891

PATIENT
  Age: 73 Year
  Sex: Female
  Weight: 100.23 kg

DRUGS (4)
  1. REMODULIN [Suspect]
     Active Substance: TREPROSTINIL
     Indication: PULMONARY ARTERIAL HYPERTENSION
     Dosage: 0.076 ?G/KG/MIN, CONTINUING
     Route: 058
     Dates: start: 20130207
  2. COUMADIN [Concomitant]
     Active Substance: WARFARIN SODIUM
     Indication: PRODUCT USED FOR UNKNOWN INDICATION
  3. REMODULIN [Suspect]
     Active Substance: TREPROSTINIL
     Dosage: 0.076 ?G/KG/MIN, CONTINUING
     Route: 058
     Dates: start: 20120216
  4. ADCIRCA [Concomitant]
     Active Substance: TADALAFIL
     Indication: PRODUCT USED FOR UNKNOWN INDICATION

REACTIONS (13)
  - Dermatitis contact [Unknown]
  - Drug dose omission [Unknown]
  - Diarrhoea [Unknown]
  - Dyspnoea [Unknown]
  - Incorrect drug administration rate [Unknown]
  - Malaise [Unknown]
  - Oedema [Unknown]
  - Weight increased [Unknown]
  - Infusion site erythema [Unknown]
  - Treatment noncompliance [Unknown]
  - Accidental overdose [Unknown]
  - Vomiting [Unknown]
  - Epistaxis [Unknown]

NARRATIVE: CASE EVENT DATE: 20150408
